FAERS Safety Report 6717945-X (Version None)
Quarter: 2010Q2

REPORT INFORMATION
  Report Type: 
  Country: None (occurrence: None)
  Receive Date: 20100510
  Receipt Date: 20100427
  Transmission Date: 20101027
  Serious: Yes (Other)
  Sender: FDA-Public Use
  Company Number: PHHY2010DE27559

PATIENT
  Age: 13 Year
  Weight: 55 kg

DRUGS (1)
  1. RITALIN LA [Suspect]
     Indication: ATTENTION DEFICIT/HYPERACTIVITY DISORDER
     Dosage: 20 MG DAILY
     Route: 048
     Dates: start: 20090101

REACTIONS (1)
  - ATRIOVENTRICULAR BLOCK FIRST DEGREE [None]
